FAERS Safety Report 9448425 (Version 1)
Quarter: 2013Q3

REPORT INFORMATION
  Report Type: Spontaneous
  Country: US (occurrence: US)
  Receive Date: 20130808
  Receipt Date: 20130808
  Transmission Date: 20140515
  Serious: Yes (Hospitalization, Other)
  Sender: FDA-Public Use
  Company Number: US-AMGEN-USASP2013053573

PATIENT
  Age: 58 Year
  Sex: Male
  Weight: 92.97 kg

DRUGS (8)
  1. ENBREL [Suspect]
     Indication: PRODUCT USED FOR UNKNOWN INDICATION
     Dosage: UNK
     Route: 065
     Dates: end: 20100911
  2. GENTAMYCIN /00047101/ [Suspect]
     Indication: PRODUCT USED FOR UNKNOWN INDICATION
     Dosage: UNK
     Route: 042
  3. HUMIRA [Suspect]
     Indication: PSORIASIS
     Dosage: 40 MG, Q2WK
     Route: 065
     Dates: start: 2008, end: 2010
  4. LIPITOR [Concomitant]
     Dosage: UNK
  5. COUMADIN                           /00014802/ [Concomitant]
     Dosage: UNK
     Dates: end: 20110617
  6. CLOBEX                             /00337102/ [Concomitant]
     Dosage: UNK
  7. VITAMIN D3 [Concomitant]
     Dosage: 1000-2000 UNIT
  8. VITAMIN D2 [Concomitant]
     Dosage: UNK
     Route: 048

REACTIONS (35)
  - Cardiac pseudoaneurysm [Recovered/Resolved]
  - Aortic valve disease [Unknown]
  - Aortic valve replacement [Unknown]
  - Drug hypersensitivity [Unknown]
  - Deafness [Unknown]
  - Toxicity to various agents [Unknown]
  - Dizziness [Unknown]
  - Ototoxicity [Unknown]
  - Gait disturbance [Unknown]
  - Oscillopsia [Unknown]
  - Squamous cell carcinoma [Unknown]
  - Cerebral infarction [Unknown]
  - Dupuytren^s contracture [Unknown]
  - Carotid arteriosclerosis [Unknown]
  - Arthropod bite [Unknown]
  - Erythema migrans [Unknown]
  - Cerebrovascular accident [Unknown]
  - Atrial fibrillation [Unknown]
  - Abscess bacterial [Recovered/Resolved]
  - Sepsis [Recovered/Resolved]
  - Salmonella bacteraemia [Recovered/Resolved]
  - Squamous cell carcinoma of skin [Unknown]
  - Basal cell carcinoma [Unknown]
  - Gastrooesophageal reflux disease [Unknown]
  - Enthesopathy [Unknown]
  - Ulcer [Unknown]
  - Muscle twitching [Unknown]
  - Dyskinesia [Unknown]
  - Musculoskeletal pain [Unknown]
  - Arthralgia [Unknown]
  - Periarthritis [Unknown]
  - Depression [Unknown]
  - Panic reaction [Unknown]
  - Psoriatic arthropathy [Unknown]
  - Rhinitis [Unknown]
